FAERS Safety Report 8842729 (Version 2)
Quarter: 2012Q4

REPORT INFORMATION
  Report Type: 
  Country: AU (occurrence: AU)
  Receive Date: 20121016
  Receipt Date: 20121029
  Transmission Date: 20130627
  Serious: Yes (Disabling)
  Sender: FDA-Public Use
  Company Number: AU-B.I. PHARMACEUTICALS,INC./RIDGEFIELD-2012-AU-01730AU

PATIENT
  Age: 63 Year
  Sex: Male
  Weight: 84 kg

DRUGS (6)
  1. PRADAXA [Suspect]
     Indication: ATRIAL FIBRILLATION
     Dosage: 300 mg
     Dates: start: 20110811
  2. AMIODARONE [Concomitant]
     Dosage: 50 mg
     Dates: start: 2010
  3. ALDACTONE [Concomitant]
     Dosage: 12.5 mg
     Dates: start: 2010
  4. COVERSYL [Concomitant]
     Dosage: 10 mg
     Dates: start: 2010
  5. FRUSEMIDE [Concomitant]
     Dosage: 80 mg
     Dates: start: 2010
  6. DILATREND [Concomitant]
     Dosage: 50 mg
     Dates: start: 2010

REACTIONS (2)
  - Eye haemorrhage [Not Recovered/Not Resolved]
  - Blindness [Not Recovered/Not Resolved]
